FAERS Safety Report 22383019 (Version 1)
Quarter: 2023Q2

REPORT INFORMATION
  Report Type: Spontaneous
  Country: US (occurrence: None)
  Receive Date: 20230526
  Receipt Date: 20230526
  Transmission Date: 20230722
  Serious: Yes (Hospitalization)
  Sender: FDA-Public Use
  Company Number: None

PATIENT
  Sex: 0

DRUGS (1)
  1. CHOLINE CHLORIDE\DEXPANTHENOL\LEVOCARNITINE\METHIONINE [Suspect]
     Active Substance: CHOLINE CHLORIDE\DEXPANTHENOL\LEVOCARNITINE\METHIONINE
     Indication: Product used for unknown indication

REACTIONS (1)
  - Cellulitis [None]
